FAERS Safety Report 17711216 (Version 1)
Quarter: 2020Q2

REPORT INFORMATION
  Report Type: Spontaneous
  Country: CH (occurrence: CH)
  Receive Date: 20200427
  Receipt Date: 20200427
  Transmission Date: 20200714
  Serious: Yes (Other)
  Sender: FDA-Public Use
  Company Number: NVSC2020CH105764

PATIENT
  Age: 28 Year
  Sex: Female

DRUGS (13)
  1. ZOFRAN [Suspect]
     Active Substance: ONDANSETRON HYDROCHLORIDE
     Indication: PRODUCT USED FOR UNKNOWN INDICATION
     Dosage: 4 MG, BID
     Route: 048
     Dates: start: 20200403, end: 20200404
  2. PARACETAMOL [Concomitant]
     Active Substance: ACETAMINOPHEN
     Indication: PYREXIA
     Dosage: 3 G
     Route: 048
     Dates: start: 20200322, end: 20200329
  3. NEXIUM [Suspect]
     Active Substance: ESOMEPRAZOLE MAGNESIUM
     Dosage: 40 MG, QD
     Route: 042
     Dates: start: 20200404, end: 20200405
  4. PARACETAMOL [Concomitant]
     Active Substance: ACETAMINOPHEN
     Indication: RHINORRHOEA
     Dosage: 1 G, BID
     Route: 048
     Dates: start: 20200405, end: 20200405
  5. ZOFRAN [Suspect]
     Active Substance: ONDANSETRON HYDROCHLORIDE
     Dosage: 4 MG, IN TOTAL
     Route: 042
     Dates: start: 20200404, end: 20200404
  6. NEXIUM [Suspect]
     Active Substance: ESOMEPRAZOLE MAGNESIUM
     Indication: PRODUCT USED FOR UNKNOWN INDICATION
     Dosage: 80 MG, QD
     Route: 048
     Dates: start: 20200401, end: 20200404
  7. PRIMPERAN [Suspect]
     Active Substance: METOCLOPRAMIDE HYDROCHLORIDE
     Indication: NAUSEA
     Dosage: UNK UNK, (ALTERNATING THE ADMINISTRATION METHODS EVERY TWELVE HOURS)
     Route: 030
     Dates: start: 20200401, end: 20200404
  8. DIAZEPAM. [Concomitant]
     Active Substance: DIAZEPAM
     Indication: PRODUCT USED FOR UNKNOWN INDICATION
     Dosage: 2 MG, BID
     Route: 042
     Dates: start: 20200405, end: 20200405
  9. DESOREN [Concomitant]
     Indication: PRODUCT USED FOR UNKNOWN INDICATION
     Dosage: 0.02 MG, QD
     Route: 048
  10. PRIMPERAN [Suspect]
     Active Substance: METOCLOPRAMIDE HYDROCHLORIDE
     Dosage: 10 MG, IN TOTAL
     Route: 042
     Dates: start: 20200404, end: 20200404
  11. AKINETON-1 [Concomitant]
     Indication: PRODUCT USED FOR UNKNOWN INDICATION
     Dosage: 5 MG, QD
     Route: 042
     Dates: start: 20200404, end: 20200405
  12. PRIMPERAN [Suspect]
     Active Substance: METOCLOPRAMIDE HYDROCHLORIDE
     Indication: VOMITING
     Dosage: UNK (ALTERNATING THE ADMINISTRATION METHODS EVERY TWELVE HOURS)
     Route: 048
     Dates: start: 20200401, end: 20200404
  13. PASPERTIN (METOCLOPRAMIDE\POLIDOCANOL) [Suspect]
     Active Substance: METOCLOPRAMIDE\POLIDOCANOL
     Indication: PRODUCT USED FOR UNKNOWN INDICATION
     Dosage: 10 MG, IN TOTAL
     Route: 042
     Dates: start: 20200404, end: 20200404

REACTIONS (3)
  - Hepatocellular injury [Recovering/Resolving]
  - Torticollis [Recovered/Resolved]
  - Drug-induced liver injury [Recovering/Resolving]

NARRATIVE: CASE EVENT DATE: 20200404
